FAERS Safety Report 4462072-8 (Version None)
Quarter: 2004Q3

REPORT INFORMATION
  Report Type: 
  Country: None (occurrence: None)
  Receive Date: 20040924
  Receipt Date: 20040913
  Transmission Date: 20050211
  Serious: Yes (Hospitalization)
  Sender: FDA-Public Use
  Company Number: 2004-BP-08146RO

PATIENT
  Age: 74 Year
  Sex: Male

DRUGS (2)
  1. MIRTAZAPINE TABLET, 45 MG (MIRTAZAPINE) [Suspect]
     Indication: DEPRESSION
     Dosage: SEE IMAGE
     Route: 048
  2. LISINOPRIL [Suspect]
     Dosage: SEE IMAGE
     Route: 048

REACTIONS (6)
  - ABNORMAL BEHAVIOUR [None]
  - MUSCLE RIGIDITY [None]
  - NEUTROPHIL PERCENTAGE INCREASED [None]
  - RHABDOMYOLYSIS [None]
  - URINARY TRACT INFECTION [None]
  - WHITE BLOOD CELL COUNT INCREASED [None]
